FAERS Safety Report 9094554 (Version 2)
Quarter: 2013Q2

REPORT INFORMATION
  Report Type: Spontaneous
  Country: US (occurrence: US)
  Receive Date: 20130220
  Receipt Date: 20130401
  Transmission Date: 20140414
  Serious: Yes (Death)
  Sender: FDA-Public Use
  Company Number: US-009507513-1302GRC003410

PATIENT
  Age: 25 Year
  Sex: Male

DRUGS (1)
  1. TEMOZOLOMIDE [Suspect]
     Indication: PITUITARY TUMOUR
     Dosage: 350 MG, QD
     Route: 048
     Dates: start: 20110322

REACTIONS (2)
  - Death [Fatal]
  - Drug ineffective [Unknown]
